FAERS Safety Report 10032790 (Version 2)
Quarter: 2014Q2

REPORT INFORMATION
  Report Type: Report from Study
  Country: CN (occurrence: CN)
  Receive Date: 20140324
  Receipt Date: 20140407
  Transmission Date: 20141212
  Serious: Yes (Hospitalization)
  Sender: FDA-Public Use
  Company Number: CN-UCBSA-114815

PATIENT
  Age: 45 Year
  Sex: Female
  Weight: 64.5 kg

DRUGS (2)
  1. LEVETIRACETAM [Suspect]
     Indication: EPILEPSY
     Route: 048
     Dates: start: 20131122
  2. IRBESARTAN [Concomitant]
     Indication: HYPERTENSION
     Route: 048
     Dates: start: 201305

REACTIONS (3)
  - Coronary artery disease [Recovering/Resolving]
  - Angina unstable [Recovering/Resolving]
  - Atrioventricular block second degree [Recovering/Resolving]
